FAERS Safety Report 14544037 (Version 3)
Quarter: 2018Q1

REPORT INFORMATION
  Report Type: Spontaneous
  Country: AU (occurrence: AU)
  Receive Date: 20180216
  Receipt Date: 20180327
  Transmission Date: 20180509
  Serious: Yes (Other)
  Sender: FDA-Public Use
  Company Number: AU-PFIZER INC-2018059183

PATIENT
  Sex: Male

DRUGS (2)
  1. HEPARIN SODIUM. [Suspect]
     Active Substance: HEPARIN SODIUM
     Indication: DIALYSIS
     Dosage: 500 IU IN 5 ML /10000 UNITS PER TREATMENT X 3 WEEKLY /STARTED MORE THAN 18 MONTHS
  2. LIGNOCAINE [Suspect]
     Active Substance: LIDOCAINE HYDROCHLORIDE
     Indication: DIALYSIS
     Dosage: 1 % 50 MG IN 5 ML/ABOUT 25 MG PER TREATMENT/ MORE THAN 18 MONTHS

REACTIONS (3)
  - Thrombosis [Recovered/Resolved]
  - Wrong drug administered [Recovered/Resolved]
  - Haemorrhage [Recovered/Resolved]

NARRATIVE: CASE EVENT DATE: 2018
